FAERS Safety Report 8776657 (Version 1)
Quarter: 2012Q4

REPORT INFORMATION
  Report Type: 
  Country: US (occurrence: US)
  Receive Date: 20120910
  Receipt Date: 20120910
  Transmission Date: 20130627
  Serious: Yes (Death)
  Sender: FDA-Public Use
  Company Number: PHHY2009US071281

PATIENT

DRUGS (9)
  1. CICLOSPORIN [Suspect]
     Indication: ACUTE MYELOID LEUKAEMIA
     Dosage: 6 mg/kg, over 2 hour as loading dose
  2. CICLOSPORIN [Suspect]
     Dosage: 16 mg/kg, per day
  3. CYTARABINE [Suspect]
     Indication: ACUTE MYELOID LEUKAEMIA
     Dosage: 200 mg/m2, daily over 24 hours
  4. CYTARABINE [Suspect]
     Dosage: 200 mg/m2, daily over 24 hours on day 1-5
  5. DAUNORUBICIN [Suspect]
     Indication: ACUTE MYELOID LEUKAEMIA
     Dosage: 45 mg/m2, 24 hour continuous infusion on day 1-3
  6. DAUNORUBICIN [Suspect]
     Dosage: 45 mg/m2, 24 hour continuous infusion on day 1 and 2
  7. CIPROFLOXACIN [Concomitant]
     Indication: PROPHYLAXIS
  8. FLUCONAZOLE [Concomitant]
     Indication: PROPHYLAXIS
  9. ACYCLOVIR [Concomitant]
     Indication: PROPHYLAXIS

REACTIONS (1)
  - Sepsis [Fatal]
